FAERS Safety Report 15699209 (Version 1)
Quarter: 2018Q4

REPORT INFORMATION
  Report Type: Spontaneous
  Country: US (occurrence: US)
  Receive Date: 20181207
  Receipt Date: 20181207
  Transmission Date: 20190205
  Serious: Yes (Hospitalization)
  Sender: FDA-Public Use
  Company Number: US-TEVA-2018-US-984124

PATIENT
  Age: 21 Year
  Sex: Female

DRUGS (3)
  1. EPIPEN [Suspect]
     Active Substance: EPINEPHRINE
     Route: 065
  2. TRAZODONE [Suspect]
     Active Substance: TRAZODONE HYDROCHLORIDE
     Indication: INSOMNIA
  3. TRAZODONE [Suspect]
     Active Substance: TRAZODONE HYDROCHLORIDE
     Indication: DEPRESSION
     Dates: start: 20181129, end: 20181129

REACTIONS (8)
  - Pain of skin [Unknown]
  - Headache [Unknown]
  - Confusional state [Unknown]
  - Oropharyngeal pain [Unknown]
  - Hallucination [Unknown]
  - Syncope [Unknown]
  - Nausea [Unknown]
  - Muscle twitching [Unknown]

NARRATIVE: CASE EVENT DATE: 20181129
